FAERS Safety Report 6682071-5 (Version None)
Quarter: 2010Q2

REPORT INFORMATION
  Report Type: 
  Country: None (occurrence: None)
  Receive Date: 20100415
  Receipt Date: 20100406
  Transmission Date: 20101027
  Serious: Yes (Life-Threatening, Hospitalization)
  Sender: FDA-Public Use
  Company Number: ES-BIOGENIDEC-2010BI008859

PATIENT
  Sex: Male

DRUGS (1)
  1. AVONEX [Suspect]
     Indication: MULTIPLE SCLEROSIS
     Route: 030
     Dates: start: 20000101

REACTIONS (11)
  - BACK PAIN [None]
  - CEREBRAL ATROPHY [None]
  - ESCHERICHIA INFECTION [None]
  - MUSCLE ATROPHY [None]
  - NECROTISING FASCIITIS [None]
  - NEUROPSYCHOLOGICAL TEST ABNORMAL [None]
  - OPTIC NEURITIS [None]
  - ORO-PHARYNGEAL ASPERGILLOSIS [None]
  - PSEUDOMONAS INFECTION [None]
  - STAPHYLOCOCCAL INFECTION [None]
  - TRACHEITIS [None]
